FAERS Safety Report 4877835-4 (Version None)
Quarter: 2005Q4

REPORT INFORMATION
  Report Type: 
  Country: None (occurrence: None)
  Receive Date: 20051226
  Receipt Date: 20051004
  Transmission Date: 20060501
  Serious: No
  Sender: FDA-Public Use
  Company Number: USA0509107155

PATIENT
  Age: 48 Year
  Sex: Female
  Weight: 61 kg

DRUGS (3)
  1. CYMBALTA [Suspect]
     Indication: DEPRESSION
     Dosage: 30 MG
     Dates: start: 20050725, end: 20050825
  2. ANTABUSE [Concomitant]
  3. DEXEDRINE [Concomitant]

REACTIONS (2)
  - BREAST TENDERNESS [None]
  - VAGINAL HAEMORRHAGE [None]
